FAERS Safety Report 6282630-8 (Version None)
Quarter: 2009Q3

REPORT INFORMATION
  Report Type: 
  Country: None (occurrence: None)
  Receive Date: 20090724
  Receipt Date: 20090714
  Transmission Date: 20100115
  Serious: Yes (Other)
  Sender: FDA-Public Use
  Company Number: PHEH2009US07528

PATIENT
  Sex: Male

DRUGS (4)
  1. ENABLEX [Suspect]
     Dosage: 7.5 MG, UNK
  2. GLIMEPIRIDE [Suspect]
  3. METFORMIN HCL [Suspect]
  4. ASPIRIN [Suspect]
     Dosage: 81 MG, UNK

REACTIONS (1)
  - HEPATIC ENZYME INCREASED [None]
